FAERS Safety Report 14478977 (Version 1)
Quarter: 2018Q1

REPORT INFORMATION
  Report Type: Spontaneous
  Country: US (occurrence: US)
  Receive Date: 20180202
  Receipt Date: 20180202
  Transmission Date: 20180509
  Serious: No
  Sender: FDA-Public Use
  Company Number: US-PFIZER INC-2018042903

PATIENT
  Sex: Female

DRUGS (1)
  1. EUCRISA [Suspect]
     Active Substance: CRISABOROLE
     Indication: ECZEMA
     Dosage: UNK, (APPLIED IT FOR APPROXIMATELY ONE WEEK )
     Route: 061
     Dates: end: 20180126

REACTIONS (2)
  - Rash papular [Not Recovered/Not Resolved]
  - Urticaria [Unknown]
